FAERS Safety Report 23123584 (Version 1)
Quarter: 2023Q4

REPORT INFORMATION
  Report Type: Spontaneous
  Country: FR (occurrence: FR)
  Receive Date: 20231030
  Receipt Date: 20231030
  Transmission Date: 20240110
  Serious: Yes (Other)
  Sender: FDA-Public Use
  Company Number: FR-NOVOPROD-1125757

PATIENT
  Sex: Male
  Weight: 101 kg

DRUGS (7)
  1. OZEMPIC [Suspect]
     Active Substance: SEMAGLUTIDE
     Indication: Product used for unknown indication
     Dosage: UNK(INJECTION OF 0.33 INSTEAD OF 0.25)
     Route: 058
  2. OZEMPIC [Suspect]
     Active Substance: SEMAGLUTIDE
     Dosage: 1 MG, QW
     Route: 058
     Dates: start: 202310
  3. METFORMIN [Concomitant]
     Active Substance: METFORMIN HYDROCHLORIDE
     Dosage: ONE IN THE MORNING AND IN THE EVENING, DOSAGE : 500 UNITS UNSPECIFIED
  4. XANAX [Concomitant]
     Active Substance: ALPRAZOLAM
     Dosage: 0.25 (UNSPECIFIED UNITS) PER DAY
  5. LIPTRUZET [Concomitant]
     Active Substance: ATORVASTATIN CALCIUM\EZETIMIBE
     Dosage: UNK
  6. BISOPROLOL [Concomitant]
     Active Substance: BISOPROLOL\BISOPROLOL FUMARATE
     Dosage: 1 DF,QD
  7. FLECAINIDE [Concomitant]
     Active Substance: FLECAINIDE
     Dosage: 1 DF, QD

REACTIONS (8)
  - Palpitations [Recovered/Resolved]
  - Tachycardia [Recovered/Resolved]
  - Heart rate abnormal [Unknown]
  - Pallor [Unknown]
  - Overdose [Recovered/Resolved]
  - Product communication issue [Recovered/Resolved]
  - Product selection error [Recovered/Resolved]
  - Incorrect dose administered [Recovered/Resolved]

NARRATIVE: CASE EVENT DATE: 20230701
